FAERS Safety Report 5987088-1 (Version None)
Quarter: 2008Q4

REPORT INFORMATION
  Report Type: 
  Country: None (occurrence: None)
  Receive Date: 20081209
  Receipt Date: 20080818
  Transmission Date: 20090506
  Serious: No
  Sender: FDA-Public Use
  Company Number: A0743079A

PATIENT
  Age: 86 Year
  Sex: Male

DRUGS (12)
  1. AVANDAMET [Suspect]
     Dosage: .5TAB PER DAY
     Route: 048
     Dates: start: 20080530, end: 20080815
  2. POTASSIUM CHLORIDE [Concomitant]
  3. WARFARIN SODIUM [Concomitant]
  4. AMLODIPINE [Concomitant]
  5. NAMENDA [Concomitant]
  6. XALATAN [Concomitant]
  7. ALPHAGAN P [Concomitant]
  8. TRUSOPT [Concomitant]
  9. ACTONEL [Concomitant]
  10. EFFEXOR XR [Concomitant]
  11. LEVAQUIN [Concomitant]
  12. LOPRESSOR [Concomitant]

REACTIONS (1)
  - RASH PRURITIC [None]
